FAERS Safety Report 9891361 (Version 1)
Quarter: 2014Q1

REPORT INFORMATION
  Report Type: Spontaneous
  Country: US (occurrence: US)
  Receive Date: 20140212
  Receipt Date: 20140212
  Transmission Date: 20141002
  Serious: No
  Sender: FDA-Public Use
  Company Number: US-PFIZER INC-2014038427

PATIENT
  Age: 68 Year
  Sex: Female

DRUGS (5)
  1. BEXTRA [Suspect]
     Dosage: UNK
  2. CELEBREX [Suspect]
     Dosage: 200 MG, 1X/DAY (1 TAB QD)
  3. FAMOTIDINE [Suspect]
     Dosage: 20 MG, UNK
  4. FOLIC ACID [Suspect]
     Dosage: 1 MG, UNK
  5. SIMVASTATIN [Suspect]
     Dosage: 10 MG, UNK

REACTIONS (1)
  - Drug hypersensitivity [Unknown]
